FAERS Safety Report 7562355-9 (Version None)
Quarter: 2011Q2

REPORT INFORMATION
  Report Type: 
  Country: None (occurrence: None)
  Receive Date: 20110620
  Receipt Date: 20110620
  Transmission Date: 20111010
  Serious: Yes (Hospitalization)
  Sender: FDA-Public Use
  Company Number: None

PATIENT
  Age: 83 Year
  Sex: Male
  Weight: 98.1 kg

DRUGS (1)
  1. DOXYCYCLINE [Suspect]
     Indication: INFECTION
     Dosage: ONCE PO
     Route: 048
     Dates: start: 20110508, end: 20110508

REACTIONS (1)
  - EXFOLIATIVE RASH [None]
